FAERS Safety Report 14851485 (Version 1)
Quarter: 2018Q2

REPORT INFORMATION
  Report Type: Report from Study
  Country: US (occurrence: US)
  Receive Date: 20180507
  Receipt Date: 20180507
  Transmission Date: 20180711
  Serious: Yes (Other)
  Sender: FDA-Public Use
  Company Number: US-ROCHE-1611813

PATIENT

DRUGS (6)
  1. PEG-INTERFERON ALFA 2A [Suspect]
     Active Substance: PEGINTERFERON ALFA-2A
     Indication: HEPATITIS C
     Route: 065
  2. SIMEPREVIR [Suspect]
     Active Substance: SIMEPREVIR
     Indication: HEPATITIS C
     Route: 065
  3. SIMEPREVIR [Suspect]
     Active Substance: SIMEPREVIR
     Route: 065
  4. RIBAVIRIN. [Suspect]
     Active Substance: RIBAVIRIN
     Indication: HEPATITIS C
     Route: 065
  5. SOFOSBUVIR [Suspect]
     Active Substance: SOFOSBUVIR
     Route: 065
  6. SOFOSBUVIR [Suspect]
     Active Substance: SOFOSBUVIR
     Indication: HEPATITIS C
     Route: 065

REACTIONS (18)
  - Hepatic hydrothorax [Unknown]
  - Acute kidney injury [Unknown]
  - Hyperkalaemia [Unknown]
  - Hepatic failure [Unknown]
  - Bacteraemia [Unknown]
  - Oesophageal varices haemorrhage [Unknown]
  - Deep vein thrombosis [Unknown]
  - Dehydration [Unknown]
  - Urosepsis [Unknown]
  - Peritonitis bacterial [Unknown]
  - Ascites [Unknown]
  - Eye haemorrhage [Unknown]
  - Gout [Unknown]
  - Jaundice [Unknown]
  - Hepatic encephalopathy [Unknown]
  - Thrombocytopenia [Unknown]
  - Supraventricular tachycardia [Unknown]
  - Clostridium difficile colitis [Unknown]
